FAERS Safety Report 4763887-9 (Version None)
Quarter: 2005Q3

REPORT INFORMATION
  Report Type: 
  Country: None (occurrence: None)
  Receive Date: 20050906
  Receipt Date: 20050510
  Transmission Date: 20060218
  Serious: No
  Sender: FDA-Public Use
  Company Number: 2005-BP-07751BP

PATIENT
  Age: 72 Year
  Sex: Female

DRUGS (10)
  1. SPIRIVA [Suspect]
     Indication: PNEUMONIA
     Dosage: 18 MCG (18 MCG) IH
     Route: 055
     Dates: start: 20050502, end: 20050506
  2. ZITHROMAX (AXITHROMYCIN) [Concomitant]
  3. KETEK [Concomitant]
  4. DIGOXIN [Concomitant]
  5. LISINOPRIL [Concomitant]
  6. METOPROLOL (METOPROL) [Concomitant]
  7. COUMADIN [Concomitant]
  8. LASIX [Concomitant]
  9. LIPITOR [Concomitant]
  10. PREDNISONE [Concomitant]

REACTIONS (6)
  - AGEUSIA [None]
  - EATING DISORDER [None]
  - PHARYNGEAL HYPOAESTHESIA [None]
  - STOMATITIS [None]
  - SWOLLEN TONGUE [None]
  - TOOTH INJURY [None]
